FAERS Safety Report 8075211-7 (Version None)
Quarter: 2012Q1

REPORT INFORMATION
  Report Type: 
  Country: None (occurrence: None)
  Receive Date: 20120127
  Receipt Date: 20120123
  Transmission Date: 20120608
  Serious: No
  Sender: FDA-Public Use
  Company Number: US-PFIZER INC-2011293925

PATIENT
  Sex: Female
  Weight: 55.782 kg

DRUGS (1)
  1. SUTENT [Suspect]
     Indication: RENAL CANCER
     Dosage: 25 MG, 1X/DAY
     Route: 048
     Dates: start: 20111001

REACTIONS (4)
  - STOMATITIS [None]
  - ORAL DISCOMFORT [None]
  - HYPOPHAGIA [None]
  - ORAL PAIN [None]
